FAERS Safety Report 9425364 (Version 3)
Quarter: 2013Q3

REPORT INFORMATION
  Report Type: Spontaneous
  Country: US (occurrence: US)
  Receive Date: 20130729
  Receipt Date: 20130909
  Transmission Date: 20140515
  Serious: No
  Sender: FDA-Public Use
  Company Number: US-ROXANE LABORATORIES, INC.-2013-RO-01191RO

PATIENT
  Age: 70 Year
  Sex: Male
  Weight: 104 kg

DRUGS (22)
  1. PREDNISONE [Suspect]
     Indication: EAR DISORDER
     Route: 048
     Dates: start: 20130614, end: 20130630
  2. PREDNISONE [Suspect]
     Indication: INFLAMMATION
  3. MYRBETRIQ [Concomitant]
     Indication: BLADDER DISORDER
     Dosage: 25 MG
     Route: 048
     Dates: start: 20130115
  4. MYRBETRIQ [Concomitant]
     Indication: PROSTATIC DISORDER
  5. SIMVASTATIN [Concomitant]
     Indication: BLOOD CHOLESTEROL
     Dosage: 40 MG
     Route: 048
     Dates: start: 20101109
  6. VERAPAMIL [Concomitant]
     Indication: BLOOD PRESSURE
     Dosage: 240 MG
     Route: 048
     Dates: start: 20101001
  7. LOSARTAN [Concomitant]
     Indication: BLOOD PRESSURE
     Dates: start: 20101001
  8. CARVEDILOL [Concomitant]
     Indication: BLOOD PRESSURE
     Dosage: 12.5 MG
     Route: 048
     Dates: start: 20121219
  9. FOLTANX [Concomitant]
     Indication: LIMB DISCOMFORT
  10. PROSTA-METTO [Concomitant]
     Indication: PROSTATIC DISORDER
  11. SAW-PALMETTO [Concomitant]
     Indication: PROSTATIC DISORDER
     Dosage: 1000 MG
     Route: 048
  12. CO-Q10 [Concomitant]
     Indication: ENZYME SUPPLEMENTATION
     Dosage: 200 MG
  13. CLOBEX [Concomitant]
  14. VALIUM [Concomitant]
     Indication: MUSCLE SPASMS
     Route: 048
  15. HYZAAR [Concomitant]
     Indication: HYPERTENSION
     Route: 048
  16. VALTREX [Concomitant]
     Dosage: 1000 MG
     Route: 048
  17. FORTESTA [Concomitant]
  18. FLONASE [Concomitant]
     Route: 045
  19. NOVOLOG MIX [Concomitant]
     Route: 058
  20. METFORMIN [Concomitant]
     Indication: DIABETES MELLITUS
     Dosage: 1500 MG
     Route: 048
  21. BYDUREON [Concomitant]
     Route: 058
  22. CIALIS [Concomitant]
     Dosage: 20 MG
     Route: 048

REACTIONS (1)
  - Blood glucose increased [Not Recovered/Not Resolved]
